FAERS Safety Report 7002435-X (Version None)
Quarter: 2010Q3

REPORT INFORMATION
  Report Type: 
  Country: None (occurrence: None)
  Receive Date: 20100917
  Receipt Date: 20100917
  Transmission Date: 20110219
  Serious: Yes (Death, Hospitalization)
  Sender: FDA-Public Use
  Company Number: None

PATIENT
  Sex: Male
  Weight: 81.7 kg

DRUGS (1)
  1. MULTIHANCE [Suspect]
     Indication: COMPUTERISED TOMOGRAM
     Dosage: 20ML ONCE IV
     Route: 042
     Dates: start: 20100826

REACTIONS (8)
  - BLOOD CREATINE PHOSPHOKINASE INCREASED [None]
  - BLOOD CREATININE INCREASED [None]
  - CARDIO-RESPIRATORY ARREST [None]
  - CONVULSION [None]
  - FACE OEDEMA [None]
  - HYPOTENSION [None]
  - RESPIRATORY FAILURE [None]
  - TROPONIN INCREASED [None]
